FAERS Safety Report 17674326 (Version 1)
Quarter: 2020Q2

REPORT INFORMATION
  Report Type: Spontaneous
  Country: US (occurrence: US)
  Receive Date: 20200416
  Receipt Date: 20200416
  Transmission Date: 20200714
  Serious: No
  Sender: FDA-Public Use
  Company Number: US-ASTRAZENECA-2020SE24181

PATIENT
  Sex: Male
  Weight: 9 kg

DRUGS (1)
  1. SYNAGIS [Suspect]
     Active Substance: PALIVIZUMAB
     Route: 030

REACTIONS (7)
  - Malaise [Unknown]
  - Nasopharyngitis [Unknown]
  - Eating disorder [Unknown]
  - Pyrexia [Unknown]
  - Adverse event [Unknown]
  - Pulmonary congestion [Unknown]
  - Nasal congestion [Unknown]
